FAERS Safety Report 22630425 (Version 1)
Quarter: 2023Q2

REPORT INFORMATION
  Report Type: Spontaneous
  Country: US (occurrence: None)
  Receive Date: 20230620
  Receipt Date: 20230620
  Transmission Date: 20230721
  Serious: No
  Sender: FDA-Public Use
  Company Number: None

PATIENT
  Age: 65 Year
  Weight: 117.93 kg

DRUGS (7)
  1. AVASTIN [Suspect]
     Active Substance: BEVACIZUMAB
     Indication: Colon cancer
     Dosage: FREQUENCY : EVERY THREE WEEKS;?
     Route: 042
  2. CAPECITABINE [Suspect]
     Active Substance: CAPECITABINE
     Indication: Colon cancer
     Dosage: FREQUENCY : TWICE A DAY;?
     Route: 048
  3. BORTEZOMIB [Concomitant]
     Active Substance: BORTEZOMIB
  4. ELIQUIS [Concomitant]
     Active Substance: APIXABAN
  5. ONDANSETRON [Concomitant]
     Active Substance: ONDANSETRON
  6. PROMETHAZINE [Concomitant]
     Active Substance: PROMETHAZINE HYDROCHLORIDE
  7. MARINOL [Concomitant]
     Active Substance: DRONABINOL

REACTIONS (3)
  - Vomiting [None]
  - Vomiting [None]
  - Diarrhoea [None]
